FAERS Safety Report 21944597 (Version 1)
Quarter: 2023Q1

REPORT INFORMATION
  Report Type: Spontaneous
  Country: US (occurrence: None)
  Receive Date: 20230201
  Receipt Date: 20230201
  Transmission Date: 20230418
  Serious: Yes (Hospitalization)
  Sender: FDA-Public Use
  Company Number: None

PATIENT
  Sex: Male

DRUGS (1)
  1. HUMIRA [Suspect]
     Active Substance: ADALIMUMAB
     Indication: Rheumatoid arthritis
     Dosage: OTHER STRENGTH : 40MG/0.8ML;?OTHER FREQUENCY : N/A;?
     Route: 058
     Dates: start: 202108

REACTIONS (3)
  - Fall [None]
  - Femur fracture [None]
  - Therapy interrupted [None]
